FAERS Safety Report 7911415-9 (Version None)
Quarter: 2011Q4

REPORT INFORMATION
  Report Type: 
  Country: None (occurrence: None)
  Receive Date: 20111114
  Receipt Date: 20111031
  Transmission Date: 20120403
  Serious: Yes (Hospitalization)
  Sender: FDA-Public Use
  Company Number: FR-UCBSA-020015

PATIENT
  Age: 23 Year
  Sex: Female
  Weight: 79 kg

DRUGS (4)
  1. KEPPRA [Suspect]
     Indication: EPILEPSY
     Dosage: TOTAL DAILY DOSE: 500 MG
     Route: 048
     Dates: start: 20100605
  2. LAMICTAL [Suspect]
     Indication: EPILEPSY
     Dosage: TOTAL DAILY DOSE: 25 MG
     Route: 048
     Dates: start: 20100512, end: 20100604
  3. AUGMENTIN [Concomitant]
     Indication: TONSILLITIS
     Route: 048
     Dates: start: 20100604
  4. URBANYL [Concomitant]
     Dosage: TOTAL DAILY DOSE: 5 MG
     Route: 048
     Dates: start: 20100622

REACTIONS (2)
  - TOXIC SKIN ERUPTION [None]
  - MATERNAL EXPOSURE DURING PREGNANCY [None]
